FAERS Safety Report 9216628 (Version 2)
Quarter: 2013Q2

REPORT INFORMATION
  Report Type: Report from Study
  Country: US (occurrence: US)
  Receive Date: 20130408
  Receipt Date: 20130430
  Transmission Date: 20140414
  Serious: Yes (Hospitalization)
  Sender: FDA-Public Use
  Company Number: US-GENZYME-CLOF-1002566

PATIENT
  Age: 54 Year
  Sex: Male
  Weight: 91.5 kg

DRUGS (4)
  1. CLOLAR [Suspect]
     Indication: BONE MARROW CONDITIONING REGIMEN
     Dosage: 82 MG, QD
     Route: 042
     Dates: start: 20130129, end: 20130202
  2. CLOLAR [Suspect]
     Indication: ACUTE MYELOID LEUKAEMIA
  3. BUSULFAN [Suspect]
     Indication: BONE MARROW CONDITIONING REGIMEN
     Dosage: 248 MG, QD
     Route: 042
     Dates: start: 20130130, end: 20130131
  4. BUSULFAN [Suspect]
     Indication: ACUTE MYELOID LEUKAEMIA
     Dosage: 193 MG, QD
     Route: 042
     Dates: start: 20130201, end: 20130202

REACTIONS (3)
  - Caecitis [Recovered/Resolved]
  - Constipation [Unknown]
  - Faeces hard [Recovered/Resolved]
